FAERS Safety Report 7753486 (Version 3)
Quarter: 2013Q2

REPORT INFORMATION
  Report Type: Report from Study
  Country: JP (occurrence: JP)
  Receive Date: 20110110
  Receipt Date: 20130409
  Transmission Date: 20140414
  Serious: Yes (Life-Threatening, Hospitalization, Other)
  Sender: FDA-Public Use
  Company Number: JP-CELGENEUS-087-21880-10112702

PATIENT
  Age: 74 Year
  Sex: Female
  Weight: 40.2 kg

DRUGS (24)
  1. REVLIMID [Suspect]
     Indication: PLASMA CELL MYELOMA
     Dosage: 10 MILLIGRAM
     Route: 048
     Dates: start: 20101012, end: 20101206
  2. REVLIMID [Suspect]
     Dosage: 10 MILLIGRAM
     Route: 048
     Dates: start: 20101109, end: 20101118
  3. REVLIMID [Suspect]
     Dosage: 10 MILLIGRAM
     Route: 048
     Dates: start: 20101130, end: 20101206
  4. DEXAMETHASONE [Concomitant]
     Indication: PLASMA CELL MYELOMA
     Dosage: 40 MILLIGRAM
     Route: 041
     Dates: start: 20101012, end: 20101015
  5. DEXAMETHASONE [Concomitant]
     Dosage: 40 MILLIGRAM
     Route: 041
     Dates: start: 20101019, end: 20101019
  6. DEXAMETHASONE [Concomitant]
     Dosage: 40 MILLIGRAM
     Route: 041
     Dates: start: 20101026, end: 20101026
  7. DEXAMETHASONE [Concomitant]
     Dosage: 40 MILLIGRAM
     Route: 041
     Dates: start: 20101109, end: 20101216
  8. PREDONINE [Concomitant]
     Indication: PLASMA CELL MYELOMA
     Dosage: 5 MILLIGRAM
     Route: 048
     Dates: start: 20101012, end: 20101108
  9. CALBLOCK [Concomitant]
     Indication: HYPERTENSION
     Dosage: 16 MILLIGRAM
     Route: 048
     Dates: start: 20101012, end: 20101126
  10. DIOVAN [Concomitant]
     Indication: HYPERTENSION
     Dosage: 80 MILLIGRAM
     Route: 048
     Dates: start: 20101012, end: 20101113
  11. BAYASPIRIN [Concomitant]
     Indication: PROPHYLAXIS
     Dosage: 100 MILLIGRAM
     Route: 048
     Dates: start: 20101016, end: 20101213
  12. FERROMIA [Concomitant]
     Indication: PRODUCT USED FOR UNKNOWN INDICATION
     Dosage: 50 MILLIGRAM
     Route: 048
     Dates: start: 20101012, end: 20101213
  13. FLUCONAZOLE [Concomitant]
     Indication: PROPHYLAXIS
     Dosage: 100 MILLIGRAM
     Route: 048
     Dates: start: 20101012, end: 20101108
  14. FLUCONAZOLE [Concomitant]
     Dosage: 100 MILLIGRAM
     Route: 048
     Dates: start: 20101112, end: 20101118
  15. MEXITIL [Concomitant]
     Indication: ARRHYTHMIA
     Dosage: 200 MILLIGRAM
     Route: 048
     Dates: start: 20101012, end: 20101013
  16. PROTECADIN [Concomitant]
     Indication: PROPHYLAXIS
     Dosage: 20 MILLIGRAM
     Route: 048
     Dates: start: 20101012, end: 20101213
  17. SULTAMUGIN [Concomitant]
     Indication: PRODUCT USED FOR UNKNOWN INDICATION
     Route: 065
     Dates: start: 20101118
  18. AMIKACIN SULFATE [Concomitant]
     Indication: PRODUCT USED FOR UNKNOWN INDICATION
     Route: 058
     Dates: start: 20101118
  19. VENILON [Concomitant]
     Indication: PRODUCT USED FOR UNKNOWN INDICATION
     Route: 065
     Dates: start: 20101118
  20. MEROPENEM [Concomitant]
     Indication: SEPSIS
     Route: 065
     Dates: start: 20101120
  21. AMLODIPINE [Concomitant]
     Indication: HYPERTENSION
     Dosage: 5 MILLIGRAM
     Route: 048
     Dates: start: 20101127, end: 20101213
  22. CONCENTRATED RED CELLS [Concomitant]
     Indication: PRODUCT USED FOR UNKNOWN INDICATION
     Dosage: 2 UNITS
     Route: 041
     Dates: start: 20101118, end: 20101119
  23. CONCENTRATED RED CELLS [Concomitant]
     Dosage: 2 UNITS
     Route: 041
     Dates: start: 20101202, end: 20101203
  24. CONCENTRATED RED CELLS [Concomitant]
     Dosage: 2 UNITS
     Route: 041
     Dates: start: 20101210, end: 20101211

REACTIONS (5)
  - Sepsis [Recovered/Resolved]
  - Thrombocytopenia [Not Recovered/Not Resolved]
  - White blood cell count decreased [Recovering/Resolving]
  - Neutrophil count decreased [Not Recovered/Not Resolved]
  - Epistaxis [Recovered/Resolved]
